FAERS Safety Report 19417556 (Version 2)
Quarter: 2021Q3

REPORT INFORMATION
  Report Type: Spontaneous
  Country: US (occurrence: US)
  Receive Date: 20210615
  Receipt Date: 20210702
  Transmission Date: 20211014
  Serious: Yes (Other)
  Sender: FDA-Public Use
  Company Number: US-VIFOR (INTERNATIONAL) INC.-VIT-2021-05134

PATIENT
  Age: 86 Year
  Sex: Male
  Weight: 67.8 kg

DRUGS (11)
  1. ACETAMINOPHEN. [Concomitant]
     Active Substance: ACETAMINOPHEN
     Indication: PAIN
     Route: 048
  2. AMIODARONE [Concomitant]
     Active Substance: AMIODARONE
     Route: 048
  3. EPOETIN ALFA [Concomitant]
     Active Substance: ERYTHROPOIETIN
     Dosage: 4000 UNIT/ML AS DIRECTED
  4. HECTOROL [Suspect]
     Active Substance: DOXERCALCIFEROL
     Indication: HYPERPARATHYROIDISM SECONDARY
     Route: 042
     Dates: start: 20210327
  5. MIRCERA [Suspect]
     Active Substance: METHOXY POLYETHYLENE GLYCOL-EPOETIN BETA
     Indication: NEPHROGENIC ANAEMIA
     Route: 042
     Dates: start: 20210527, end: 20210527
  6. DOCUSATE SODIUM. [Concomitant]
     Active Substance: DOCUSATE SODIUM
     Indication: CONSTIPATION
     Route: 048
  7. HYDROCODONE?ACETAMINOPHEN [Concomitant]
     Active Substance: ACETAMINOPHEN\HYDROCODONE
     Indication: PAIN
     Dosage: 5?325 MG
     Route: 048
  8. PROTONIX [Concomitant]
     Active Substance: PANTOPRAZOLE SODIUM
     Route: 048
  9. SEVELAMER CARBONATE. [Concomitant]
     Active Substance: SEVELAMER CARBONATE
     Route: 048
  10. TAMSULOSIN [Concomitant]
     Active Substance: TAMSULOSIN
     Route: 048
  11. ELIQUIS [Concomitant]
     Active Substance: APIXABAN
     Route: 048

REACTIONS (2)
  - Unresponsive to stimuli [Recovered/Resolved]
  - Drug hypersensitivity [Recovered/Resolved]

NARRATIVE: CASE EVENT DATE: 20210527
